FAERS Safety Report 6471119-9 (Version None)
Quarter: 2009Q4

REPORT INFORMATION
  Report Type: 
  Country: None (occurrence: None)
  Receive Date: 20091203
  Receipt Date: 20091201
  Transmission Date: 20100525
  Serious: Yes (Death)
  Sender: FDA-Public Use
  Company Number: PHHY2009JP52149

PATIENT
  Age: 86 Year
  Sex: Female

DRUGS (5)
  1. NEORAL [Suspect]
     Indication: MYASTHENIA GRAVIS
     Dosage: 35 MG, BID
     Route: 048
     Dates: start: 20080301, end: 20090801
  2. TAKEPRON [Concomitant]
     Dosage: 15 MG, UNK
     Route: 048
     Dates: end: 20090801
  3. PREDNISOLONE [Concomitant]
     Dosage: UNK
     Dates: end: 20090801
  4. SIGMART [Concomitant]
     Dosage: 15 MG, UNK
     Route: 048
     Dates: end: 20090801
  5. HERBESSOR R [Concomitant]
     Dosage: 200 MG, UNK
     Route: 048
     Dates: end: 20090801

REACTIONS (1)
  - PNEUMONIA [None]
